FAERS Safety Report 23906190 (Version 4)
Quarter: 2024Q3

REPORT INFORMATION
  Report Type: Spontaneous
  Country: US (occurrence: US)
  Receive Date: 20240528
  Receipt Date: 20240814
  Transmission Date: 20241016
  Serious: Yes (Other)
  Sender: NOVO NORDISK
  Company Number: US-NOVOPROD-1226499

PATIENT
  Age: 67 Year
  Sex: Female

DRUGS (1)
  1. OZEMPIC [Suspect]
     Active Substance: SEMAGLUTIDE
     Indication: Type 2 diabetes mellitus
     Dosage: 2 MG
     Route: 058
     Dates: start: 20240508

REACTIONS (9)
  - Food poisoning [Not Recovered/Not Resolved]
  - Weight loss poor [Unknown]
  - Stress [Not Recovered/Not Resolved]
  - Oral pain [Not Recovered/Not Resolved]
  - Vomiting [Not Recovered/Not Resolved]
  - Diarrhoea [Not Recovered/Not Resolved]
  - Product communication issue [Unknown]
  - Product label confusion [Unknown]
  - Product use issue [Unknown]

NARRATIVE: CASE EVENT DATE: 20240509
